FAERS Safety Report 13956531 (Version 1)
Quarter: 2017Q3

REPORT INFORMATION
  Report Type: Spontaneous
  Country: IT (occurrence: IT)
  Receive Date: 20170911
  Receipt Date: 20170911
  Transmission Date: 20171128
  Serious: Yes (Other)
  Sender: FDA-Public Use
  Company Number: IT-TEVA-803916ACC

PATIENT
  Age: 55 Year
  Sex: Male
  Weight: 71 kg

DRUGS (1)
  1. AZITROMICINA TEVA ITALIA - TEVA ITALIA S.R.L. [Suspect]
     Active Substance: AZITHROMYCIN MONOHYDRATE
     Indication: PRODUCT USED FOR UNKNOWN INDICATION
     Dosage: 500 MILLIGRAM DAILY;
     Dates: start: 20170822, end: 20170822

REACTIONS (2)
  - Abdominal pain upper [Unknown]
  - Diarrhoea haemorrhagic [Unknown]

NARRATIVE: CASE EVENT DATE: 20170822
